FAERS Safety Report 15829822 (Version 1)
Quarter: 2019Q1

REPORT INFORMATION
  Report Type: Spontaneous
  Country: US (occurrence: US)
  Receive Date: 20190115
  Receipt Date: 20190115
  Transmission Date: 20190417
  Serious: No
  Sender: FDA-Public Use
  Company Number: US-PERRIGO-18US013027

PATIENT
  Sex: Female

DRUGS (1)
  1. TRETINOIN 0.05% CREAM (2L4) [Suspect]
     Active Substance: TRETINOIN
     Indication: SKIN WRINKLING
     Dosage: 1 APPLICATION, UNK
     Route: 061
     Dates: start: 201811

REACTIONS (2)
  - Adverse drug reaction [Unknown]
  - Off label use [Unknown]

NARRATIVE: CASE EVENT DATE: 201811
